FAERS Safety Report 24979483 (Version 1)
Quarter: 2025Q1

REPORT INFORMATION
  Report Type: Spontaneous
  Country: US (occurrence: US)
  Receive Date: 20250218
  Receipt Date: 20250218
  Transmission Date: 20250408
  Serious: No
  Sender: ELI LILLY AND COMPANY
  Company Number: US-ELI_LILLY_AND_COMPANY-US202502005444

PATIENT
  Sex: Female

DRUGS (13)
  1. ZEPBOUND [Suspect]
     Active Substance: TIRZEPATIDE
     Indication: Depression
     Route: 058
     Dates: start: 202405
  2. ZEPBOUND [Suspect]
     Active Substance: TIRZEPATIDE
     Indication: Depression
     Route: 058
  3. ZEPBOUND [Suspect]
     Active Substance: TIRZEPATIDE
     Indication: Depression
     Route: 058
  4. ZEPBOUND [Suspect]
     Active Substance: TIRZEPATIDE
     Indication: Depression
     Route: 058
  5. ZEPBOUND [Suspect]
     Active Substance: TIRZEPATIDE
     Indication: Depression
     Route: 058
  6. ZEPBOUND [Suspect]
     Active Substance: TIRZEPATIDE
     Route: 058
     Dates: start: 202501
  7. ZEPBOUND [Suspect]
     Active Substance: TIRZEPATIDE
     Route: 058
     Dates: start: 202501
  8. ZEPBOUND [Suspect]
     Active Substance: TIRZEPATIDE
     Route: 058
     Dates: start: 202501
  9. ZEPBOUND [Suspect]
     Active Substance: TIRZEPATIDE
     Route: 058
     Dates: start: 202501
  10. ZEPBOUND [Suspect]
     Active Substance: TIRZEPATIDE
     Indication: Depression
     Route: 058
  11. ZEPBOUND [Suspect]
     Active Substance: TIRZEPATIDE
     Indication: Depression
     Route: 058
  12. ZEPBOUND [Suspect]
     Active Substance: TIRZEPATIDE
     Indication: Depression
     Route: 058
  13. ZEPBOUND [Suspect]
     Active Substance: TIRZEPATIDE
     Indication: Depression
     Route: 058

REACTIONS (6)
  - Off label use [Unknown]
  - Feeling abnormal [Not Recovered/Not Resolved]
  - Apathy [Not Recovered/Not Resolved]
  - Food craving [Unknown]
  - Asthenia [Not Recovered/Not Resolved]
  - Nausea [Recovered/Resolved]

NARRATIVE: CASE EVENT DATE: 20250201
